FAERS Safety Report 6852804-3 (Version None)
Quarter: 2010Q3

REPORT INFORMATION
  Report Type: 
  Country: None (occurrence: None)
  Receive Date: 20100717
  Receipt Date: 20071130
  Transmission Date: 20110219
  Serious: No
  Sender: FDA-Public Use
  Company Number: US-PFIZER INC-2007099573

PATIENT
  Sex: Female
  Weight: 52.2 kg

DRUGS (10)
  1. CHANTIX [Suspect]
     Indication: SMOKING CESSATION THERAPY
     Route: 048
     Dates: start: 20071101, end: 20071109
  2. DOSTINEX [Concomitant]
     Indication: PITUITARY TUMOUR BENIGN
  3. FENTANYL [Concomitant]
  4. XANAX [Concomitant]
     Indication: SLEEP DISORDER
  5. ZANAFLEX [Concomitant]
     Indication: SLEEP DISORDER
  6. PROZAC [Concomitant]
  7. THYROID TAB [Concomitant]
  8. NORCO [Concomitant]
  9. METHOTREXATE [Concomitant]
  10. ANALGESICS [Concomitant]
     Indication: PAIN

REACTIONS (7)
  - ABNORMAL DREAMS [None]
  - JOINT SWELLING [None]
  - LOSS OF LIBIDO [None]
  - MALAISE [None]
  - NAUSEA [None]
  - RED BLOOD CELL ABNORMALITY [None]
  - VOMITING [None]
